FAERS Safety Report 4746035-0 (Version None)
Quarter: 2005Q3

REPORT INFORMATION
  Report Type: 
  Country: None (occurrence: None)
  Receive Date: 20050816
  Receipt Date: 20050808
  Transmission Date: 20060218
  Serious: Yes (Hospitalization)
  Sender: FDA-Public Use
  Company Number: PHNU2005DE02817

PATIENT
  Age: 61 Year
  Sex: Female

DRUGS (1)
  1. FEMARA [Suspect]
     Indication: BREAST CANCER METASTATIC
     Dosage: 2.5 MG, QD
     Route: 048
     Dates: start: 20050101

REACTIONS (3)
  - COMPUTERISED TOMOGRAM ABNORMAL [None]
  - LUNG DISORDER [None]
  - RESPIRATORY FAILURE [None]
